FAERS Safety Report 9848404 (Version 1)
Quarter: 2014Q1

REPORT INFORMATION
  Report Type: Spontaneous
  Country: NO (occurrence: NO)
  Receive Date: 20140128
  Receipt Date: 20140128
  Transmission Date: 20141002
  Serious: Yes (Life-Threatening, Hospitalization)
  Sender: FDA-Public Use
  Company Number: NO-JNJFOC-20140112066

PATIENT
  Age: 80 Year
  Sex: Female
  Weight: 78 kg

DRUGS (4)
  1. XARELTO [Suspect]
     Indication: EMBOLISM VENOUS
     Route: 048
     Dates: start: 20131211
  2. XARELTO [Suspect]
     Indication: DEEP VEIN THROMBOSIS
     Route: 048
     Dates: start: 20131211
  3. NORSPAN [Concomitant]
     Indication: PAIN
     Route: 062
  4. DIPRODERM [Concomitant]
     Indication: EAR DISORDER
     Route: 050

REACTIONS (3)
  - Deep vein thrombosis [Recovering/Resolving]
  - Drug ineffective [Recovering/Resolving]
  - Pulmonary embolism [Recovering/Resolving]
